FAERS Safety Report 7055451-6 (Version None)
Quarter: 2010Q4

REPORT INFORMATION
  Report Type: 
  Country: None (occurrence: None)
  Receive Date: 20101021
  Receipt Date: 20101006
  Transmission Date: 20110411
  Serious: Yes (Other)
  Sender: FDA-Public Use
  Company Number: US-CELGENEUS-163-21880-09081933

PATIENT
  Sex: Female

DRUGS (3)
  1. REVLIMID [Suspect]
     Indication: MULTIPLE MYELOMA
     Route: 048
     Dates: start: 20090201
  2. REVLIMID [Suspect]
     Route: 048
     Dates: start: 20100501
  3. REVLIMID [Suspect]
     Route: 048
     Dates: start: 20101001

REACTIONS (5)
  - AMNESIA [None]
  - CEREBRAL ATROPHY [None]
  - DELIRIUM [None]
  - GENERAL PHYSICAL HEALTH DETERIORATION [None]
  - SENSORY LOSS [None]
